FAERS Safety Report 8964686 (Version 1)
Quarter: 2012Q4

REPORT INFORMATION
  Report Type: 
  Country: FR (occurrence: FR)
  Receive Date: 20121213
  Receipt Date: 20121213
  Transmission Date: 20130627
  Serious: Yes (Hospitalization)
  Sender: FDA-Public Use
  Company Number: FR-ASTRAZENECA-2012SE91746

PATIENT
  Age: 26663 Day
  Sex: Male

DRUGS (9)
  1. INEXIUM [Suspect]
     Indication: VARICES OESOPHAGEAL
     Dosage: 20 mg, every day, LONG LASTING TREATMENT
     Route: 048
     Dates: end: 20120806
  2. INEXIUM [Suspect]
     Indication: VARICES OESOPHAGEAL
     Route: 048
     Dates: start: 20120813, end: 20120816
  3. AVLOCARDYL [Concomitant]
  4. PRAVASTATIN [Concomitant]
  5. DOLIPRAN [Concomitant]
  6. KARDEGIC [Concomitant]
  7. TARDYFERON [Concomitant]
  8. NICOBION [Concomitant]
     Dates: end: 20120813
  9. TRANSIPEG [Concomitant]

REACTIONS (9)
  - Posture abnormal [Recovered/Resolved]
  - Dysarthria [Recovered/Resolved]
  - Salivary hypersecretion [Recovered/Resolved]
  - Balance disorder [Recovered/Resolved]
  - Progressive supranuclear palsy [Recovered/Resolved]
  - Coma [Recovered/Resolved]
  - Bradycardia [Recovered/Resolved]
  - Hypotonia [Recovered/Resolved]
  - Asthenia [Recovered/Resolved]
